FAERS Safety Report 17051531 (Version 1)
Quarter: 2019Q4

REPORT INFORMATION
  Report Type: Spontaneous
  Country: CN (occurrence: CN)
  Receive Date: 20191120
  Receipt Date: 20191120
  Transmission Date: 20200122
  Serious: Yes (Other)
  Sender: FDA-Public Use
  Company Number: CN-009507513-1911CHN004020

PATIENT
  Sex: Male

DRUGS (1)
  1. PROPECIA [Suspect]
     Active Substance: FINASTERIDE
     Dosage: UNK
     Route: 048
     Dates: start: 201907

REACTIONS (3)
  - Heart rate increased [Unknown]
  - Arrhythmia [Unknown]
  - Extrasystoles [Unknown]

NARRATIVE: CASE EVENT DATE: 2019
